FAERS Safety Report 15553132 (Version 1)
Quarter: 2018Q4

REPORT INFORMATION
  Report Type: Spontaneous
  Country: PL (occurrence: PL)
  Receive Date: 20181026
  Receipt Date: 20181026
  Transmission Date: 20190205
  Serious: Yes (Other)
  Sender: FDA-Public Use
  Company Number: PL-AUROBINDO-AUR-APL-2018-029210

PATIENT
  Age: 32 Year
  Sex: Female

DRUGS (17)
  1. AZATHIOPRINE. [Suspect]
     Active Substance: AZATHIOPRINE
     Dosage: 100 MG, UNK
     Dates: start: 201112
  2. BUDESONIDE. [Suspect]
     Active Substance: BUDESONIDE
     Dosage: ENTERIC
     Route: 065
  3. NITRENDIPINE [Suspect]
     Active Substance: NITRENDIPINE
     Indication: HYPERTENSION
     Dosage: 15 MILLIGRAM, TWO TIMES A DAY (15 MG, 2X PER DAY)
     Route: 065
  4. BUDESONIDE. [Suspect]
     Active Substance: BUDESONIDE
     Dosage: 3 MG, UNK
     Dates: start: 201112
  5. BUDESONIDE. [Suspect]
     Active Substance: BUDESONIDE
     Dosage: 3 MILLIGRAM, ONCE A DAY
     Route: 065
  6. METOPROLOL. [Suspect]
     Active Substance: METOPROLOL
     Indication: HYPERTENSION
     Dosage: 50 MILLIGRAM, DAILY (QD)
     Route: 065
  7. METHYLPREDNISOLON                  /00049601/ [Suspect]
     Active Substance: METHYLPREDNISOLONE
     Indication: PRODUCT USED FOR UNKNOWN INDICATION
     Dosage: UNK
     Route: 065
  8. BUDESONIDE. [Suspect]
     Active Substance: BUDESONIDE
     Dosage: 3 MG, UNK
     Dates: start: 201212
  9. BUDESONIDE. [Suspect]
     Active Substance: BUDESONIDE
     Dosage: 3 MG, UNK
     Dates: start: 201410
  10. AZATHIOPRINE. [Suspect]
     Active Substance: AZATHIOPRINE
     Dosage: 100 MG, UNK
     Dates: start: 201012, end: 201205
  11. INFLIXIMAB [Suspect]
     Active Substance: INFLIXIMAB
     Indication: PRODUCT USED FOR UNKNOWN INDICATION
     Dosage: 3 DOSES
     Route: 065
     Dates: start: 200804, end: 200805
  12. BUDESONIDE. [Suspect]
     Active Substance: BUDESONIDE
     Dosage: 3 MG, UNK
     Route: 048
     Dates: start: 201405
  13. AZATHIOPRINE. [Suspect]
     Active Substance: AZATHIOPRINE
     Indication: PRODUCT USED FOR UNKNOWN INDICATION
     Dosage: UNK
     Route: 065
     Dates: start: 200910, end: 201205
  14. AZATHIOPRINE. [Suspect]
     Active Substance: AZATHIOPRINE
     Dosage: UNK
     Route: 065
     Dates: start: 201205, end: 201205
  15. BUDESONIDE. [Suspect]
     Active Substance: BUDESONIDE
     Indication: CROHN^S DISEASE
     Dosage: 3 MG, UNK
     Dates: start: 200911
  16. BUDESONIDE. [Suspect]
     Active Substance: BUDESONIDE
     Dosage: 3 MG, UNK
     Dates: start: 201012
  17. BUDESONIDE. [Suspect]
     Active Substance: BUDESONIDE
     Dosage: 3 MG, UNK
     Dates: start: 201402

REACTIONS (9)
  - Maternal exposure during breast feeding [Unknown]
  - Exposure during pregnancy [Unknown]
  - Diarrhoea [Unknown]
  - Proteinuria [Unknown]
  - Pyrexia [Unknown]
  - Blood albumin increased [Unknown]
  - C-reactive protein abnormal [Unknown]
  - Abdominal pain [Unknown]
  - Urinary tract infection [Unknown]
